FAERS Safety Report 17676524 (Version 2)
Quarter: 2021Q4

REPORT INFORMATION
  Report Type: Spontaneous
  Country: CH (occurrence: CH)
  Receive Date: 20200416
  Receipt Date: 20211123
  Transmission Date: 20220303
  Serious: Yes (Hospitalization)
  Sender: FDA-Public Use
  Company Number: CH-AMERICAN REGENT INC-2020000866

PATIENT

DRUGS (1)
  1. FERINJECT [Suspect]
     Active Substance: FERRIC CARBOXYMALTOSE
     Indication: Iron deficiency
     Dosage: UNK, GREATER THAN OR EQUAL TO 500 MG
     Route: 042

REACTIONS (6)
  - Hypophosphataemia [Unknown]
  - Fibroblast growth factor 23 increased [Unknown]
  - Blood 1,25-dihydroxycholecalciferol decreased [Unknown]
  - Malaise [Unknown]
  - Urine phosphorus increased [Unknown]
  - Paraesthesia [Recovering/Resolving]
